FAERS Safety Report 19492938 (Version 3)
Quarter: 2021Q3

REPORT INFORMATION
  Report Type: Spontaneous
  Country: US (occurrence: US)
  Receive Date: 20210705
  Receipt Date: 20210820
  Transmission Date: 20211014
  Serious: Yes (Hospitalization, Other)
  Sender: FDA-Public Use
  Company Number: US-SA-2021SA218693

PATIENT
  Age: 68 Year
  Sex: Female
  Weight: 79.3 kg

DRUGS (2)
  1. GAMMAGARD [Concomitant]
     Active Substance: HUMAN IMMUNOGLOBULIN G
     Dosage: UNK
  2. DUPIXENT [Suspect]
     Active Substance: DUPILUMAB
     Indication: ASTHMA
     Dosage: 300 MG, QOW
     Route: 058
     Dates: start: 20190627, end: 20210614

REACTIONS (6)
  - Illness [Unknown]
  - Anti-neutrophil cytoplasmic antibody positive vasculitis [Unknown]
  - Haemoptysis [Unknown]
  - Acute kidney injury [Unknown]
  - Haematuria [Unknown]
  - Product use issue [Unknown]

NARRATIVE: CASE EVENT DATE: 202105
